FAERS Safety Report 7897437-5 (Version None)
Quarter: 2011Q4

REPORT INFORMATION
  Report Type: 
  Country: None (occurrence: None)
  Receive Date: 20111107
  Receipt Date: 20111027
  Transmission Date: 20120403
  Serious: Yes (Other)
  Sender: FDA-Public Use
  Company Number: US-JNJFOC-20111012272

PATIENT
  Sex: Male

DRUGS (1)
  1. XARELTO [Suspect]
     Indication: KNEE OPERATION
     Route: 048
     Dates: start: 20111021

REACTIONS (2)
  - OEDEMA PERIPHERAL [None]
  - PAIN IN EXTREMITY [None]
